FAERS Safety Report 23516524 (Version 1)
Quarter: 2024Q1

REPORT INFORMATION
  Report Type: Report from Study
  Country: US (occurrence: US)
  Receive Date: 20240213
  Receipt Date: 20240213
  Transmission Date: 20240409
  Serious: Yes (Other)
  Sender: FDA-Public Use
  Company Number: US-REGENERON PHARMACEUTICALS, INC.-2024-016834

PATIENT
  Sex: Female

DRUGS (5)
  1. EYLEA [Suspect]
     Active Substance: AFLIBERCEPT
     Indication: Neovascular age-related macular degeneration
     Dosage: 2 MG, EVERY 39 TO 91 DAYS INTO LEFT EYE (FORMULATION: GERRESHEIMER PFS)
     Dates: start: 20220129, end: 20230111
  2. EYLEA [Suspect]
     Active Substance: AFLIBERCEPT
     Indication: Choroidal neovascularisation
  3. METOPROLOL [Concomitant]
     Active Substance: METOPROLOL
     Indication: Product used for unknown indication
  4. CELEBREX [Concomitant]
     Active Substance: CELECOXIB
     Indication: Product used for unknown indication
  5. MENEST [ESTROGENS CONJUGATED;ESTROGENS ESTERIFIED] [Concomitant]
     Indication: Product used for unknown indication

REACTIONS (1)
  - Macular hole [Not Recovered/Not Resolved]

NARRATIVE: CASE EVENT DATE: 20230111
